FAERS Safety Report 6678833-0 (Version None)
Quarter: 2010Q2

REPORT INFORMATION
  Report Type: 
  Country: None (occurrence: None)
  Receive Date: 20100413
  Receipt Date: 20100329
  Transmission Date: 20101027
  Serious: Yes (Hospitalization, Other)
  Sender: FDA-Public Use
  Company Number: PT-MEDIMMUNE-MEDI-0010792

PATIENT
  Sex: Female

DRUGS (4)
  1. SYNAGIS [Suspect]
     Route: 030
     Dates: start: 20100101, end: 20100101
  2. SYNAGIS [Suspect]
     Route: 030
     Dates: start: 20100201
  3. KAPSOVIT [Concomitant]
  4. IRON [Concomitant]

REACTIONS (2)
  - NECROTISING ENTEROCOLITIS NEONATAL [None]
  - RESPIRATORY SYNCYTIAL VIRUS BRONCHIOLITIS [None]
